FAERS Safety Report 24237043 (Version 2)
Quarter: 2024Q3

REPORT INFORMATION
  Report Type: Spontaneous
  Country: MA (occurrence: MA)
  Receive Date: 20240822
  Receipt Date: 20240909
  Transmission Date: 20241017
  Serious: Yes (Hospitalization, Other)
  Sender: MSN LABORATORIES
  Company Number: MA-MSNLABS-2024MSNLIT01820

PATIENT

DRUGS (1)
  1. ERLOTINIB [Suspect]
     Active Substance: ERLOTINIB
     Indication: Metastatic bronchial carcinoma
     Dosage: 150MG 1 TAB/DAY  FOR 10 DAYS
     Route: 065
     Dates: start: 2022

REACTIONS (1)
  - Acute generalised exanthematous pustulosis [Recovered/Resolved]
